FAERS Safety Report 5757566-9 (Version None)
Quarter: 2008Q2

REPORT INFORMATION
  Report Type: 
  Country: None (occurrence: None)
  Receive Date: 20080529
  Receipt Date: 20080515
  Transmission Date: 20081010
  Serious: Yes (Life-Threatening, Hospitalization)
  Sender: FDA-Public Use
  Company Number: FABR-1000166

PATIENT
  Age: 54 Year
  Sex: Male
  Weight: 69 kg

DRUGS (9)
  1. FABRAZYME [Suspect]
     Indication: FABRY'S DISEASE
     Dosage: 65 MG, Q2W, INTRAVENOUS; 70 MG Q2W, INTRAVENOUS
     Route: 042
     Dates: start: 20050304
  2. FABRAZYME [Suspect]
     Indication: FABRY'S DISEASE
     Dosage: 65 MG, Q2W, INTRAVENOUS; 70 MG Q2W, INTRAVENOUS
     Route: 042
     Dates: start: 20080101
  3. CANDESARTAN CILEXETIL (CANDESARTAN CILEXETIL) [Concomitant]
  4. CARVEDILOL [Concomitant]
  5. TRICHLORMETHIAZIDE [Concomitant]
  6. PIMOBENDAN (PIMOBENDAN) [Concomitant]
  7. BENIDIPINE HYDROCHLORIDE (BENIDIPINE HYDROCHLORIDE) [Concomitant]
  8. ALLOPURINOL [Concomitant]
  9. PRAVASTATIN [Concomitant]

REACTIONS (8)
  - CARDIAC FAILURE CHRONIC [None]
  - CEREBRAL HAEMORRHAGE [None]
  - CONDITION AGGRAVATED [None]
  - DIALYSIS [None]
  - MITRAL VALVE INCOMPETENCE [None]
  - PERICARDIAL EFFUSION [None]
  - RENAL FAILURE CHRONIC [None]
  - TRICUSPID VALVE INCOMPETENCE [None]
